FAERS Safety Report 8429927-0 (Version None)
Quarter: 2012Q2

REPORT INFORMATION
  Report Type: 
  Country: None (occurrence: None)
  Receive Date: 20120524
  Receipt Date: 20110907
  Transmission Date: 20120825
  Serious: Yes (Other)
  Sender: FDA-Public Use
  Company Number: 2011029643

PATIENT
  Age: 56 Year
  Sex: Female

DRUGS (2)
  1. HIZENTRA [Suspect]
     Indication: IMMUNODEFICIENCY COMMON VARIABLE
     Route: 058
     Dates: start: 20110101, end: 20110601
  2. GAMUNEX [Suspect]
     Indication: IMMUNODEFICIENCY COMMON VARIABLE
     Dates: start: 20110601

REACTIONS (7)
  - INFUSION RELATED REACTION [None]
  - EYE SWELLING [None]
  - DRUG INEFFECTIVE [None]
  - FEELING ABNORMAL [None]
  - MALIGNANT MELANOMA [None]
  - PSORIASIS [None]
  - INFECTION [None]
